FAERS Safety Report 10015935 (Version 1)
Quarter: 2014Q1

REPORT INFORMATION
  Report Type: Spontaneous
  Country: US (occurrence: US)
  Receive Date: 20140317
  Receipt Date: 20140317
  Transmission Date: 20141002
  Serious: Yes (Other)
  Sender: FDA-Public Use
  Company Number: US-TARO-2014P1002126

PATIENT
  Sex: Male

DRUGS (3)
  1. WARFARIN [Suspect]
     Dates: start: 2013
  2. WARFARIN [Suspect]
  3. WARFARIN SODIUM TABLETS USP 5MG [Suspect]

REACTIONS (2)
  - Coagulation time prolonged [Unknown]
  - Incorrect drug dosage form administered [Unknown]
